FAERS Safety Report 5297534-7 (Version None)
Quarter: 2007Q2

REPORT INFORMATION
  Report Type: 
  Country: None (occurrence: None)
  Receive Date: 20070409
  Receipt Date: 20070327
  Transmission Date: 20071010
  Serious: Yes (Death, Other)
  Sender: FDA-Public Use
  Company Number: MPS1-10597

PATIENT
  Age: 23 Month
  Sex: Female
  Weight: 14 kg

DRUGS (13)
  1. ALDURAZYME [Suspect]
     Indication: MUCOPOLYSACCHARIDOSIS I
     Dates: start: 20060101, end: 20060101
  2. THYMOGLOBULIN [Suspect]
     Indication: BONE MARROW TRANSPLANT
     Dates: start: 20061010
  3. BUSULFAN [Concomitant]
  4. CYCLOPHOSPHAMIDE [Concomitant]
  5. VANCOMYCIN [Concomitant]
  6. DIPYRONE TAB [Concomitant]
  7. DIPHENYLHYDANTOIN [Concomitant]
  8. IMIPENEM [Concomitant]
  9. ACYCLOVIR [Concomitant]
  10. IBUPROFEN [Concomitant]
  11. ONDANSETRON [Concomitant]
  12. DIPHENHYDRAMINE HCL [Concomitant]
  13. HYDROCORTISONE [Concomitant]

REACTIONS (4)
  - CYTOMEGALOVIRUS INFECTION [None]
  - ERYTHEMA MULTIFORME [None]
  - LYMPHOPROLIFERATIVE DISORDER [None]
  - PLATELET COUNT DECREASED [None]
